FAERS Safety Report 9653181 (Version 1)
Quarter: 2013Q4

REPORT INFORMATION
  Report Type: Spontaneous
  Country: US (occurrence: None)
  Receive Date: 20131028
  Receipt Date: 20131028
  Transmission Date: 20140711
  Serious: Yes (Hospitalization)
  Sender: FDA-Public Use
  Company Number: 2013P1020262

PATIENT
  Sex: 0

DRUGS (4)
  1. IRINOTECAN [Suspect]
     Indication: PANCREATIC CARCINOMA
     Dosage: 180 MG/M^2; X1 ; IV 90 MINUTES
     Route: 042
  2. OXALIPLATIN [Suspect]
     Indication: PANCREATIC CARCINOMA
     Dosage: 85 MG/M^2; X1; IV 2 HOURS
     Route: 042
  3. LEUCOVORIN [Concomitant]
  4. FLUOROURACIL [Concomitant]

REACTIONS (9)
  - Dysarthria [None]
  - Paraesthesia oral [None]
  - Paraesthesia [None]
  - Muscle spasms [None]
  - Ataxia [None]
  - Blepharospasm [None]
  - Infusion related reaction [None]
  - Neurotoxicity [None]
  - Potentiating drug interaction [None]
